FAERS Safety Report 7528740-6 (Version None)
Quarter: 2011Q2

REPORT INFORMATION
  Report Type: 
  Country: None (occurrence: None)
  Receive Date: 20110607
  Receipt Date: 20110202
  Transmission Date: 20111010
  Serious: No
  Sender: FDA-Public Use
  Company Number: US-ASTRAZENECA-2011SE09040

PATIENT
  Sex: Female

DRUGS (3)
  1. THYROID THERAPY [Concomitant]
     Dosage: UNKNOWN
  2. PRILOSEC OTC [Suspect]
     Route: 048
     Dates: start: 20110201, end: 20110201
  3. XANAX [Concomitant]
     Dosage: UNKNOWN

REACTIONS (4)
  - DYSKINESIA [None]
  - SENSATION OF HEAVINESS [None]
  - ASTHENIA [None]
  - VISION BLURRED [None]
